FAERS Safety Report 22313735 (Version 3)
Quarter: 2023Q2

REPORT INFORMATION
  Report Type: Spontaneous
  Country: CZ (occurrence: CZ)
  Receive Date: 20230512
  Receipt Date: 20230615
  Transmission Date: 20230722
  Serious: Yes (Hospitalization, Other)
  Sender: FDA-Public Use
  Company Number: CZ-EMA-DD-20230502-225467-085119

PATIENT
  Age: 45 Year
  Sex: Male

DRUGS (2)
  1. LEFLUNOMIDE [Suspect]
     Active Substance: LEFLUNOMIDE
     Indication: Psoriatic arthropathy
     Dosage: 20 MG, QD
  2. ADALIMUMAB [Suspect]
     Active Substance: ADALIMUMAB
     Indication: Psoriatic arthropathy
     Dosage: 80 MG, QOW
     Route: 058
     Dates: end: 2020

REACTIONS (12)
  - Staphylococcal abscess [Recovered/Resolved]
  - Extradural abscess [Recovered/Resolved]
  - Anal hypoaesthesia [Recovered/Resolved]
  - Paraparesis [Recovered/Resolved]
  - Genital hypoaesthesia [Recovered/Resolved]
  - Back pain [Recovered/Resolved]
  - Pyrexia [Recovered/Resolved]
  - Infectious pleural effusion [Recovered/Resolved]
  - Arthritis bacterial [Recovered/Resolved]
  - Erysipelas [Recovered/Resolved]
  - Cellulitis [Recovered/Resolved]
  - Muscle abscess [Recovered/Resolved]

NARRATIVE: CASE EVENT DATE: 20200101
